FAERS Safety Report 11334287 (Version 1)
Quarter: 2015Q3

REPORT INFORMATION
  Report Type: Spontaneous
  Country: JP (occurrence: JP)
  Receive Date: 20150803
  Receipt Date: 20150803
  Transmission Date: 20151125
  Serious: Yes (Hospitalization)
  Sender: FDA-Public Use
  Company Number: JP-ALLERGAN-1514818US

PATIENT
  Age: 34 Year
  Sex: Female

DRUGS (1)
  1. DAPSONE UNK [Suspect]
     Active Substance: DAPSONE
     Indication: PEMPHIGUS
     Dosage: 75 MG, QD

REACTIONS (1)
  - Eosinophilic pneumonia [Recovered/Resolved]
